FAERS Safety Report 13045269 (Version 1)
Quarter: 2016Q4

REPORT INFORMATION
  Report Type: Spontaneous
  Country: JP (occurrence: JP)
  Receive Date: 20161220
  Receipt Date: 20161220
  Transmission Date: 20170207
  Serious: Yes (Other)
  Sender: FDA-Public Use
  Company Number: JP-ALKEM LABORATORIES LIMITED-JP-ALKEM-2016-00416

PATIENT
  Age: 49 Year
  Sex: Female

DRUGS (1)
  1. LINEZOLID. [Suspect]
     Active Substance: LINEZOLID
     Indication: ARTHRITIS BACTERIAL
     Dosage: UNKNOWN

REACTIONS (3)
  - Retinal haemorrhage [Recovered/Resolved]
  - Photophobia [Recovered/Resolved]
  - Optic neuritis [Recovered/Resolved]
